FAERS Safety Report 5176399-8 (Version None)
Quarter: 2006Q4

REPORT INFORMATION
  Report Type: 
  Country: None (occurrence: None)
  Receive Date: 20061215
  Receipt Date: 20031219
  Transmission Date: 20070319
  Serious: Yes (Hospitalization)
  Sender: FDA-Public Use
  Company Number: FR-MERCK-0312FRA00079

PATIENT
  Age: 86 Year
  Sex: Female

DRUGS (8)
  1. STROMECTOL [Suspect]
     Indication: ACARODERMATITIS
     Route: 048
     Dates: start: 20031110, end: 20031110
  2. BENZYL BENZOATE [Concomitant]
     Indication: ACARODERMATITIS
     Route: 061
     Dates: start: 20031101, end: 20031101
  3. AMLODIPINE BESYLATE [Concomitant]
     Indication: HYPERTENSION
     Route: 048
  4. LEVOTHYROXINE SODIUM [Concomitant]
     Indication: HYPOTHYROIDISM
     Route: 048
  5. FUROSEMIDE [Concomitant]
     Indication: HYPERTENSION
     Route: 048
  6. POTASSIUM CHLORIDE [Concomitant]
     Route: 048
  7. TIANEPTINE [Concomitant]
     Route: 048
  8. LANSOPRAZOLE [Concomitant]
     Route: 048

REACTIONS (3)
  - ASTHMA [None]
  - CREPITATIONS [None]
  - SUPRAVENTRICULAR TACHYCARDIA [None]
